FAERS Safety Report 7756717-4 (Version None)
Quarter: 2011Q3

REPORT INFORMATION
  Report Type: 
  Country: None (occurrence: None)
  Receive Date: 20110915
  Receipt Date: 20110915
  Transmission Date: 20111222
  Serious: Yes (Other)
  Sender: FDA-Public Use
  Company Number: None

PATIENT
  Age: 41 Year
  Sex: Female
  Weight: 77.5651 kg

DRUGS (1)
  1. ORENCIA [Suspect]
     Indication: RHEUMATOID ARTHRITIS
     Dosage: 750MG 0,2,4WKS THEN Q 4 WKS IV
     Route: 042
     Dates: start: 20110811

REACTIONS (3)
  - NAUSEA [None]
  - SWOLLEN TONGUE [None]
  - OROPHARYNGEAL PAIN [None]
